FAERS Safety Report 4352954-X (Version None)
Quarter: 2004Q2

REPORT INFORMATION
  Report Type: 
  Country: None (occurrence: None)
  Receive Date: 20040430
  Receipt Date: 20040115
  Transmission Date: 20050107
  Serious: No
  Sender: FDA-Public Use
  Company Number: 204214

PATIENT
  Age: 55 Year
  Sex: Female
  Weight: 40.8 kg

DRUGS (17)
  1. XOLAIR [Suspect]
     Indication: ASTHMA
     Dosage: 150 MG, Q4W, SUBCUTANEOUS
     Route: 058
     Dates: start: 20031006
  2. THEO-DUR [Concomitant]
  3. NASACORT  AQ (TRIAMCINOLONE ACETONIDE) [Concomitant]
  4. CLARINIEX (DESLORATADINE) [Concomitant]
  5. ATROVENT NASAL SPRAY (IPRATROPIUM BROMIDE) [Concomitant]
  6. BENTYL [Concomitant]
  7. LEVBID (HYOSCYAMINE SULFATE) [Concomitant]
  8. FOSAMAX [Concomitant]
  9. PREMARIN [Concomitant]
  10. PREVACID [Concomitant]
  11. LOMOTIL [Concomitant]
  12. SANDOSTATIN [Concomitant]
  13. ATROVENT [Concomitant]
  14. ADVAIR (SALMETEROL XINOFOATE, FLUTICASONE PROPIONATE) [Concomitant]
  15. COMBIVENT (IPRATROPIUM BRMIDE, ALBUTEROL, ALBUTEROL SULFATE) [Concomitant]
  16. ALBUTEROL SOLUTION (ALBUTEROL SULFATE, ALBUTEROL) [Concomitant]
  17. HUMIBID (GUAIFENESIN) [Concomitant]

REACTIONS (3)
  - CHILLS [None]
  - DIZZINESS [None]
  - FEELING HOT [None]
